FAERS Safety Report 5335388-0 (Version None)
Quarter: 2007Q2

REPORT INFORMATION
  Report Type: 
  Country: None (occurrence: None)
  Receive Date: 20070327
  Receipt Date: 20060517
  Transmission Date: 20071010
  Serious: Yes (Hospitalization)
  Sender: FDA-Public Use
  Company Number: HQWYE398818MAY06

PATIENT
  Age: 49 Year
  Sex: Female

DRUGS (4)
  1. PROTONIX [Suspect]
     Indication: GASTROENTERITIS
     Dosage: 40 MG 2X PER 1 DAY ORAL
     Route: 048
  2. ZOFRAN [Concomitant]
  3. MAALOX (ALUMINUM HYDROXIDE GEL/MAGNESIUM HYDROXIDE) [Concomitant]
  4. DILAUDID [Concomitant]

REACTIONS (3)
  - CHEST PAIN [None]
  - MEDICATION RESIDUE [None]
  - MYOCARDIAL INFARCTION [None]
